FAERS Safety Report 8685112 (Version 2)
Quarter: 2012Q4

REPORT INFORMATION
  Report Type: 
  Country: US (occurrence: US)
  Receive Date: 20120726
  Receipt Date: 20120904
  Transmission Date: 20130627
  Serious: No
  Sender: FDA-Public Use
  Company Number: US-PFIZER INC-2012176410

PATIENT
  Age: 67 Year
  Sex: Female
  Weight: 77 kg

DRUGS (3)
  1. XALATAN [Suspect]
     Indication: GLAUCOMA
     Dosage: unknown dose in both the eyes, 1x/day
     Route: 047
     Dates: start: 2002
  2. TOPROL XL [Concomitant]
     Indication: HYPERTENSION
     Dosage: UNK
  3. LIPITOR [Concomitant]
     Indication: BLOOD CHOLESTEROL INCREASED
     Dosage: UNK

REACTIONS (3)
  - Arthritis [Unknown]
  - Superficial injury of eye [Unknown]
  - Drug administration error [Unknown]
